FAERS Safety Report 8540767-4 (Version None)
Quarter: 2012Q3

REPORT INFORMATION
  Report Type: 
  Country: None (occurrence: None)
  Receive Date: 20120726
  Receipt Date: 20120720
  Transmission Date: 20120928
  Serious: Yes (Other)
  Sender: FDA-Public Use
  Company Number: PHHY2012BR040559

PATIENT
  Sex: Male

DRUGS (6)
  1. MYFORTIC [Suspect]
     Indication: IMMUNOSUPPRESSION
     Dosage: 360 MG, BID 1 TABLET AT MORNING AND 1 TABLET AT NIGHT
     Route: 048
     Dates: start: 20070101
  2. TACROLIMUS [Concomitant]
     Indication: IMMUNOSUPPRESSION
     Dosage: 10 MG, UNK 3 TABLETS AT MORNING AND 2 TABLETS AT NIGHT
     Route: 048
     Dates: start: 20070101
  3. MYFORTIC [Suspect]
     Dosage: 360 MG, TID 1 TABLET EACH 8 HOURS
     Route: 048
     Dates: start: 20070101
  4. AMLODIPINE [Concomitant]
     Indication: HYPERTENSION
     Dosage: 50 MG, UNK 1 TABLET AT MORNING AND 1 TABLET AT AFTERNOON
     Route: 048
     Dates: start: 20090101
  5. PREDNISONE [Concomitant]
     Dosage: 5 MG, UNK
     Route: 048
     Dates: start: 19920101
  6. PROPRANOLOL [Concomitant]
     Indication: HYPERTENSION
     Dosage: 40 MG, UNK 1 TABLET AT MORNING AND 1 TABLET AT NIGHT
     Route: 048
     Dates: start: 19920101

REACTIONS (1)
  - RENAL FAILURE [None]
